FAERS Safety Report 16717747 (Version 4)
Quarter: 2019Q3

REPORT INFORMATION
  Report Type: Report from Study
  Country: US (occurrence: US)
  Receive Date: 20190819
  Receipt Date: 20190826
  Transmission Date: 20191005
  Serious: Yes (Other)
  Sender: FDA-Public Use
  Company Number: PHEH2019US032723

PATIENT
  Sex: Male

DRUGS (2)
  1. METFORMIN [Suspect]
     Active Substance: METFORMIN HYDROCHLORIDE
     Indication: PRODUCT USED FOR UNKNOWN INDICATION
     Route: 065
  2. ENTRESTO [Suspect]
     Active Substance: SACUBITRIL\VALSARTAN
     Indication: PRODUCT USED FOR UNKNOWN INDICATION
     Dosage: UNK
     Route: 048

REACTIONS (9)
  - Arthralgia [Unknown]
  - Dizziness [Unknown]
  - Dehydration [Unknown]
  - Feeling abnormal [Unknown]
  - Arthritis [Unknown]
  - Diarrhoea [Unknown]
  - Weight decreased [Unknown]
  - Ejection fraction decreased [Unknown]
  - Gout [Unknown]
